FAERS Safety Report 10183510 (Version 2)
Quarter: 2014Q2

REPORT INFORMATION
  Report Type: Report from Study
  Country: FR (occurrence: FR)
  Receive Date: 20140520
  Receipt Date: 20140520
  Transmission Date: 20141212
  Serious: Yes (Life-Threatening, Hospitalization)
  Sender: FDA-Public Use
  Company Number: FR-PFIZER INC-2011289538

PATIENT
  Age: 84 Year
  Sex: Female

DRUGS (10)
  1. AXITINIB [Suspect]
     Indication: HEPATOCELLULAR CARCINOMA
     Dosage: 5 MG, 2X/DAY
     Route: 048
     Dates: start: 20111123, end: 20111126
  2. COAPROVEL [Concomitant]
     Indication: HYPERTENSION
     Dosage: 150 MG, 1X/DAY
     Route: 048
     Dates: start: 201006
  3. TANAKAN [Concomitant]
     Indication: MEMORY IMPAIRMENT
     Dosage: 40 MG, 1X/DAY
     Route: 048
     Dates: start: 1990, end: 20111127
  4. IMOVANE [Concomitant]
     Indication: INSOMNIA
     Dosage: 3.75 MG, 1X/DAY
     Route: 048
     Dates: start: 2005
  5. PROPRANOLOL [Concomitant]
     Indication: CARDIAC DISORDER
     Dosage: 40 MG, 1X/DAY
     Route: 048
     Dates: start: 20111114, end: 20111127
  6. PROPRANOLOL [Concomitant]
     Indication: GASTROOESOPHAGEAL VARICEAL HAEMORRHAGE PROPHYLAXIS
  7. DOGMATIL [Concomitant]
     Indication: ANXIETY
     Dosage: 50 MG, 1X/DAY
     Route: 048
     Dates: start: 2005, end: 20111127
  8. METEOSPASMYL [Concomitant]
     Indication: FLATULENCE
     Dosage: 1 DF, 1X/DAY
     Route: 048
     Dates: start: 2008, end: 20111127
  9. LOVENOX [Concomitant]
     Indication: THROMBOSIS PROPHYLAXIS
     Dosage: 0.4 ML, 1X/DAY
     Route: 058
     Dates: start: 20111127, end: 20111202
  10. GAVISCON [Concomitant]
     Indication: DYSPEPSIA
     Dosage: 1 DF, 3X/DAY
     Route: 048
     Dates: start: 20111127

REACTIONS (2)
  - Asthenia [Recovered/Resolved]
  - Muscular weakness [Recovered/Resolved]
